FAERS Safety Report 15985307 (Version 1)
Quarter: 2019Q1

REPORT INFORMATION
  Report Type: Spontaneous
  Country: FR (occurrence: FR)
  Receive Date: 20190220
  Receipt Date: 20190220
  Transmission Date: 20190418
  Serious: Yes (Hospitalization, Other)
  Sender: FDA-Public Use
  Company Number: FR-HTU-2016FR014399

PATIENT
  Sex: Female

DRUGS (7)
  1. TARKA [Concomitant]
     Active Substance: TRANDOLAPRIL\VERAPAMIL HYDROCHLORIDE
     Indication: PRODUCT USED FOR UNKNOWN INDICATION
     Dosage: UNK, BID
  2. INNOVAIR [Concomitant]
     Active Substance: BECLOMETHASONE DIPROPIONATE\FORMOTEROL
     Indication: PRODUCT USED FOR UNKNOWN INDICATION
     Dosage: UNK, BID
  3. ESBERIVEN [Concomitant]
     Active Substance: TROXERUTIN
     Indication: PRODUCT USED FOR UNKNOWN INDICATION
     Dosage: 600 MG, QD
  4. VALCHLOR [Suspect]
     Active Substance: MECHLORETHAMINE
     Dosage: AT A RATE OF TWO APPLICATIONS PER WEEK
     Route: 061
  5. INEXIUM [Concomitant]
     Active Substance: ESOMEPRAZOLE
     Indication: PRODUCT USED FOR UNKNOWN INDICATION
     Dosage: 40 MG, QD
  6. VALCHLOR [Suspect]
     Active Substance: MECHLORETHAMINE
     Indication: MYCOSIS FUNGOIDES
     Dosage: UNK, QD
     Route: 061
     Dates: start: 201502
  7. CARMUSTINE. [Concomitant]
     Active Substance: CARMUSTINE
     Indication: MYCOSIS FUNGOIDES

REACTIONS (7)
  - Arterial occlusive disease [Unknown]
  - Skin necrosis [Recovered/Resolved]
  - Skin fragility [Unknown]
  - Skin ulcer [Recovered/Resolved]
  - Staphylococcal infection [Unknown]
  - Pain of skin [Recovered/Resolved]
  - Injury [Unknown]
